FAERS Safety Report 9333263 (Version 1)
Quarter: 2013Q2

REPORT INFORMATION
  Report Type: Spontaneous
  Country: US (occurrence: US)
  Receive Date: 20130606
  Receipt Date: 20130606
  Transmission Date: 20140414
  Serious: Yes (Other)
  Sender: FDA-Public Use
  Company Number: US-PFIZER INC-2013170129

PATIENT
  Age: 60 Year
  Sex: Female
  Weight: 81.63 kg

DRUGS (6)
  1. NORVASC [Suspect]
     Indication: HYPERTENSION
     Dosage: UNK
  2. PREMARIN [Suspect]
     Indication: HYSTERECTOMY
     Dosage: 0.625 MG, DAILY
     Dates: start: 1977
  3. ACCUPRIL [Suspect]
     Dosage: UNK
  4. ZOLOFT [Suspect]
     Indication: DEPRESSION
     Dosage: 150 MG DAILY (50 MG IN THE MORNING, 100 MG IN THE NIGHT)
     Dates: start: 2006
  5. DIFLUCAN [Suspect]
     Indication: FUNGAL INFECTION
     Dosage: DAILY
     Dates: start: 2012
  6. LORTAB [Concomitant]
     Indication: PAIN
     Dosage: UNK

REACTIONS (1)
  - Limb injury [Unknown]
